FAERS Safety Report 5650708-5 (Version None)
Quarter: 2008Q1

REPORT INFORMATION
  Report Type: 
  Country: None (occurrence: None)
  Receive Date: 20080131
  Receipt Date: 20071106
  Transmission Date: 20080703
  Serious: No
  Sender: FDA-Public Use
  Company Number: US200711001383

PATIENT
  Sex: Female

DRUGS (1)
  1. BYETTA [Suspect]
     Dosage: 5 UG, SUBCUTANEOUS; OTHER, SUBCUTANEOUS
     Route: 058
     Dates: start: 20071105, end: 20071105

REACTIONS (1)
  - INCORRECT DOSE ADMINISTERED [None]
